FAERS Safety Report 26045151 (Version 1)
Quarter: 2025Q4

REPORT INFORMATION
  Report Type: Report from Study
  Country: EU (occurrence: EU)
  Receive Date: 20251114
  Receipt Date: 20251114
  Transmission Date: 20260117
  Serious: Yes (Other)
  Sender: TEVA
  Company Number: EU-TEVA-VS-3391312

PATIENT
  Age: 88 Year
  Sex: Female

DRUGS (3)
  1. TERIPARATIDE [Suspect]
     Active Substance: TERIPARATIDE
     Indication: Osteoporosis
     Dosage: 20 MCG/80 MCL
     Route: 065
     Dates: start: 20250827
  2. ASPIRIN [Concomitant]
     Active Substance: ASPIRIN
     Indication: Retinal vein thrombosis
     Dosage: START DATE: SOME TIME AGO; END DATE: CONTINUES.
  3. BISMUTH SUBCITRATE\RANITIDINE HYDROCHLORIDE\SUCRALFATE [Concomitant]
     Active Substance: BISMUTH SUBCITRATE\RANITIDINE HYDROCHLORIDE\SUCRALFATE
     Indication: Hypertension
     Dosage: FORM STRENGTH: 20MG/5MG, ONE EVERY 24 HOURS; START DATE: SOME TIME AGO; END DATE: CONTINUES.

REACTIONS (1)
  - Oedema peripheral [Not Recovered/Not Resolved]

NARRATIVE: CASE EVENT DATE: 20250827
